FAERS Safety Report 13128395 (Version 5)
Quarter: 2017Q1

REPORT INFORMATION
  Report Type: Report from Study
  Country: FR (occurrence: FR)
  Receive Date: 20170118
  Receipt Date: 20170322
  Transmission Date: 20170428
  Serious: Yes (Death, Hospitalization, Other)
  Sender: FDA-Public Use
  Company Number: FR-IPSEN-CABO-16007798

PATIENT
  Age: 63 Year
  Sex: Male
  Weight: 76 kg

DRUGS (9)
  1. CABOMETYX [Suspect]
     Active Substance: CABOZANTINIB S-MALATE
     Indication: METASTATIC RENAL CELL CARCINOMA
     Dosage: 60 MG, QD
     Route: 048
     Dates: start: 20161013, end: 20161202
  2. MACROGOL [Concomitant]
     Active Substance: POLYETHYLENE GLYCOLS
     Indication: CONSTIPATION
  3. PANTOPRAZOLE [Concomitant]
     Active Substance: PANTOPRAZOLE SODIUM
     Indication: GASTRITIS
  4. PARACETAMOL [Concomitant]
     Active Substance: ACETAMINOPHEN
     Indication: PAIN
  5. SOLUPRED [Concomitant]
     Active Substance: PREDNISOLONE
     Indication: COLITIS
  6. CABOMETYX [Suspect]
     Active Substance: CABOZANTINIB S-MALATE
     Dosage: 40 MG, QD
     Route: 048
     Dates: start: 20161219, end: 20161231
  7. CACIT D3 [Concomitant]
     Active Substance: CALCIUM\CHOLECALCIFEROL
  8. MORPHINE [Concomitant]
     Active Substance: MORPHINE
  9. LEVOTHYROX [Concomitant]
     Active Substance: LEVOTHYROXINE

REACTIONS (11)
  - Peritonitis [Recovering/Resolving]
  - Intestinal perforation [Recovering/Resolving]
  - Depression [Unknown]
  - Malnutrition [Unknown]
  - Gastritis [Recovering/Resolving]
  - Venous thrombosis [Not Recovered/Not Resolved]
  - Eastern Cooperative Oncology Group performance status worsened [Unknown]
  - Malignant neoplasm progression [Fatal]
  - Asthenia [Recovering/Resolving]
  - Decreased appetite [Recovering/Resolving]
  - Palmar-plantar erythrodysaesthesia syndrome [Unknown]

NARRATIVE: CASE EVENT DATE: 2016
